APPROVED DRUG PRODUCT: PAXIL
Active Ingredient: PAROXETINE HYDROCHLORIDE
Strength: EQ 30MG BASE
Dosage Form/Route: TABLET;ORAL
Application: N020031 | Product #003 | TE Code: AB
Applicant: APOTEX INC
Approved: Dec 29, 1992 | RLD: Yes | RS: No | Type: RX